FAERS Safety Report 14124594 (Version 4)
Quarter: 2017Q4

REPORT INFORMATION
  Report Type: Spontaneous
  Country: US (occurrence: US)
  Receive Date: 20171025
  Receipt Date: 20171123
  Transmission Date: 20180321
  Serious: No
  Sender: FDA-Public Use
  Company Number: US-PFIZER INC-2017459284

PATIENT
  Age: 54 Year
  Sex: Female
  Weight: 63.5 kg

DRUGS (3)
  1. EUCRISA [Suspect]
     Active Substance: CRISABOROLE
     Indication: ECZEMA
     Dosage: 2% OINTMENT APPLIED THIN LAYER TWICE DAILY TO AFFECTED AREA
     Dates: start: 20170920
  2. LEVOXYL [Concomitant]
     Active Substance: LEVOTHYROXINE SODIUM
     Indication: THYROID DISORDER
     Dosage: 112 UG, 1X/DAY (112MCG ONCE DAILY)
     Dates: start: 1996
  3. EUCRISA [Suspect]
     Active Substance: CRISABOROLE
     Indication: PRURITUS

REACTIONS (1)
  - Drug ineffective [Not Recovered/Not Resolved]
